FAERS Safety Report 19386080 (Version 1)
Quarter: 2021Q2

REPORT INFORMATION
  Report Type: Spontaneous
  Country: US (occurrence: US)
  Receive Date: 20210607
  Receipt Date: 20210607
  Transmission Date: 20210717
  Serious: Yes (Hospitalization)
  Sender: FDA-Public Use
  Company Number: NVSC2021US126253

PATIENT
  Age: 49 Year
  Sex: Female

DRUGS (4)
  1. RANITIDINE. [Suspect]
     Active Substance: RANITIDINE
     Indication: DYSPEPSIA
     Dosage: 300 MG, QD
     Route: 048
     Dates: start: 201309, end: 201911
  2. RANITIDINE. [Suspect]
     Active Substance: RANITIDINE
     Indication: HERNIA
  3. RANITIDINE. [Suspect]
     Active Substance: RANITIDINE
     Indication: DYSPEPSIA
     Dosage: 300 MG, QD
     Route: 048
     Dates: start: 201309, end: 201911
  4. RANITIDINE. [Suspect]
     Active Substance: RANITIDINE
     Indication: HERNIA

REACTIONS (4)
  - Product use in unapproved indication [Unknown]
  - Colorectal cancer stage I [Recovering/Resolving]
  - Lung carcinoma cell type unspecified stage I [Recovering/Resolving]
  - Hepatic cancer stage I [Recovering/Resolving]

NARRATIVE: CASE EVENT DATE: 20160927
